FAERS Safety Report 10526279 (Version 2)
Quarter: 2014Q4

REPORT INFORMATION
  Report Type: Spontaneous
  Country: IT (occurrence: IT)
  Receive Date: 20141018
  Receipt Date: 20141113
  Transmission Date: 20150528
  Serious: Yes (Other)
  Sender: FDA-Public Use
  Company Number: IT-AUROBINDO-AUR-APL-2014-10983

PATIENT
  Age: 28 Year
  Sex: Female

DRUGS (1)
  1. AMOXICILLINA TABLETS 1G [Suspect]
     Active Substance: AMOXICILLIN
     Indication: EAR PAIN
     Dosage: 1 G, TOTAL
     Route: 048
     Dates: start: 20141010, end: 20141010

REACTIONS (1)
  - Generalised erythema [Recovering/Resolving]

NARRATIVE: CASE EVENT DATE: 20141010
